FAERS Safety Report 14562385 (Version 1)
Quarter: 2018Q1

REPORT INFORMATION
  Report Type: Spontaneous
  Country: US (occurrence: US)
  Receive Date: 20180221
  Receipt Date: 20180221
  Transmission Date: 20180509
  Serious: Yes (Other)
  Sender: FDA-Public Use
  Company Number: None

PATIENT
  Age: 51 Year
  Sex: Male
  Weight: 101.25 kg

DRUGS (9)
  1. OXYCODONE/ACETAMINOPHEN 10-325 [Suspect]
     Active Substance: ACETAMINOPHEN\OXYCODONE HYDROCHLORIDE
     Indication: NERVE COMPRESSION
     Dosage: ?          QUANTITY:1 TABLET(S);?
     Route: 048
     Dates: start: 20180220, end: 20180221
  2. OXYCODONE/ACETAMINOPHEN 10-325 [Suspect]
     Active Substance: ACETAMINOPHEN\OXYCODONE HYDROCHLORIDE
     Indication: INTERVERTEBRAL DISC DEGENERATION
     Dosage: ?          QUANTITY:1 TABLET(S);?
     Route: 048
     Dates: start: 20180220, end: 20180221
  3. METOPROLOL SUCC ER [Concomitant]
     Active Substance: METOPROLOL SUCCINATE
  4. DR HO^S BACK BRACE [Concomitant]
  5. OXYCODONE/ACETAMINOPHEN 10-325 [Suspect]
     Active Substance: ACETAMINOPHEN\OXYCODONE HYDROCHLORIDE
     Indication: ARTHRITIS
     Dosage: ?          QUANTITY:1 TABLET(S);?
     Route: 048
     Dates: start: 20180220, end: 20180221
  6. OXYCODONE/ACETAMINOPHEN 10-325 [Suspect]
     Active Substance: ACETAMINOPHEN\OXYCODONE HYDROCHLORIDE
     Indication: INTERVERTEBRAL DISC PROTRUSION
     Dosage: ?          QUANTITY:1 TABLET(S);?
     Route: 048
     Dates: start: 20180220, end: 20180221
  7. DR HO^S NECK BRACE [Concomitant]
  8. GENERIC BACK SUPPORT [Concomitant]
  9. BABY ASPRIN [Concomitant]
     Active Substance: ASPIRIN

REACTIONS (9)
  - Tremor [None]
  - Cold sweat [None]
  - Agitation [None]
  - Nausea [None]
  - Nephrolithiasis [None]
  - Drug ineffective [None]
  - Vomiting [None]
  - Headache [None]
  - Nervousness [None]

NARRATIVE: CASE EVENT DATE: 20180221
